FAERS Safety Report 4680815-5 (Version None)
Quarter: 2005Q2

REPORT INFORMATION
  Report Type: 
  Country: None (occurrence: None)
  Receive Date: 20050603
  Receipt Date: 20050412
  Transmission Date: 20051028
  Serious: Yes (Life-Threatening)
  Sender: FDA-Public Use
  Company Number: 200511163JP

PATIENT
  Age: 80 Year
  Sex: Male

DRUGS (1)
  1. ALLEGRA [Suspect]
     Indication: URTICARIA
     Route: 048
     Dates: start: 20050404, end: 20050405

REACTIONS (4)
  - BRADYCARDIA [None]
  - DIZZINESS [None]
  - NAUSEA [None]
  - VOMITING [None]
